FAERS Safety Report 16875305 (Version 1)
Quarter: 2019Q4

REPORT INFORMATION
  Report Type: Spontaneous
  Country: FR (occurrence: FR)
  Receive Date: 20191001
  Receipt Date: 20191001
  Transmission Date: 20200122
  Serious: Yes (Other)
  Sender: FDA-Public Use
  Company Number: FR-BAXTER-2019BAX018936

PATIENT
  Age: 1 Year
  Sex: Female
  Weight: 10 kg

DRUGS (11)
  1. ZINC. [Suspect]
     Active Substance: ZINC
     Indication: NEOPLASM
     Route: 051
     Dates: start: 20190910
  2. CHLORURE DE POTASSIUM [Suspect]
     Active Substance: POTASSIUM CHLORIDE
     Indication: NEOPLASM
     Route: 051
     Dates: start: 20190910
  3. CALCIUM [Suspect]
     Active Substance: CALCIUM
     Indication: NEOPLASM
     Route: 051
     Dates: start: 20190910
  4. CERNEVIT [Suspect]
     Active Substance: VITAMINS
     Indication: NEOPLASM
     Route: 051
     Dates: start: 20190910
  5. NONAN [Suspect]
     Active Substance: MINERALS
     Indication: NEOPLASM
     Dosage: NONAN PEDIATRIQUE
     Route: 051
     Dates: start: 20190910
  6. SMOF [Suspect]
     Active Substance: AMINO ACIDS\DEXTROSE\ELECTROLYTES NOS\SOYBEAN OIL
     Indication: NEOPLASM
     Dosage: SMOF 20%
     Route: 051
     Dates: start: 20190910
  7. EPHYNAL VIT E [Suspect]
     Active Substance: .ALPHA.-TOCOPHEROL ACETATE
     Indication: NEOPLASM
     Route: 051
     Dates: start: 20190910
  8. MAGNESIUM [Suspect]
     Active Substance: MAGNESIUM
     Indication: NEOPLASM
     Route: 051
     Dates: start: 20190910
  9. GLUCOSE [Suspect]
     Active Substance: DEXTROSE
     Indication: NEOPLASM
     Route: 051
     Dates: start: 20190910
  10. VAMINOLACT [Suspect]
     Active Substance: ALANINE\ARGININE\ASPARTIC ACID\CYSTEINE HYDROCHLORIDE\GLUTAMIC ACID\GLYCINE\HISTIDINE\ISOLEUCINE\LEUCINE\LYSINE ACETATE\METHIONINE\PHENYLALANINE\PROLINE\SERINE\TAURINE\THREONINE\TRYPTOPHAN\TYROSINE\VALINE
     Indication: NEOPLASM
     Route: 051
     Dates: start: 20190910
  11. CHLORURE DE SODIUM A 0,9 POUR CENT BAXTER, SOLUTION POUR PERFUSION EN [Suspect]
     Active Substance: SODIUM CHLORIDE
     Indication: NEOPLASM
     Route: 051
     Dates: start: 20190910

REACTIONS (2)
  - Hypoglycaemia [Unknown]
  - Seizure [Unknown]

NARRATIVE: CASE EVENT DATE: 20190917
